FAERS Safety Report 16657625 (Version 1)
Quarter: 2019Q3

REPORT INFORMATION
  Report Type: Spontaneous
  Country: US (occurrence: US)
  Receive Date: 20190801
  Receipt Date: 20190801
  Transmission Date: 20191004
  Serious: No
  Sender: FDA-Public Use
  Company Number: US-SA-2019SA208838

PATIENT
  Sex: Female

DRUGS (8)
  1. TRIAMCINOLONE ACETONIDE. [Concomitant]
     Active Substance: TRIAMCINOLONE ACETONIDE
  2. LEVOTHYROXINE SODIUM. [Concomitant]
     Active Substance: LEVOTHYROXINE SODIUM
  3. CLINDAMYCIN. [Concomitant]
     Active Substance: CLINDAMYCIN
  4. AMOXICILLIN. [Concomitant]
     Active Substance: AMOXICILLIN
  5. DUPIXENT [Suspect]
     Active Substance: DUPILUMAB
     Indication: DERMATITIS ATOPIC
     Dosage: 300 MG, QOW
     Dates: start: 20190701
  6. TACROLIMUS. [Concomitant]
     Active Substance: TACROLIMUS
  7. IBUPROFEN. [Concomitant]
     Active Substance: IBUPROFEN
  8. CETIRIZINE [Concomitant]
     Active Substance: CETIRIZINE HYDROCHLORIDE

REACTIONS (2)
  - Eye pruritus [Unknown]
  - Erythema of eyelid [Unknown]
